FAERS Safety Report 7811178-1 (Version None)
Quarter: 2011Q4

REPORT INFORMATION
  Report Type: 
  Country: None (occurrence: None)
  Receive Date: 20111013
  Receipt Date: 20111011
  Transmission Date: 20120403
  Serious: Yes (Death)
  Sender: FDA-Public Use
  Company Number: PHHY2011FR77448

PATIENT
  Sex: Female
  Weight: 59 kg

DRUGS (5)
  1. KEPPRA [Concomitant]
     Indication: EPILEPSY
     Dosage: 500 MG, BID
     Dates: start: 20110403
  2. PREDNISOLONE [Concomitant]
     Indication: OEDEMA
     Dosage: 20 MG  2 DF QD
     Dates: start: 20110601
  3. EVEROLIMUS [Suspect]
     Indication: METASTASES TO BONE
     Dosage: 10 MG, DAILY
     Route: 065
     Dates: start: 20110503, end: 20110806
  4. EVEROLIMUS [Suspect]
     Dosage: UNK UKN, UNK
     Route: 065
     Dates: start: 20110806
  5. DURAGESIC-100 [Concomitant]
     Indication: BONE PAIN
     Dosage: 12 UG 1 DF EVERY 3 DAYS.

REACTIONS (6)
  - NEOPLASM PROGRESSION [None]
  - DEPRESSED LEVEL OF CONSCIOUSNESS [None]
  - DRUG TOLERANCE [None]
  - GENERAL PHYSICAL HEALTH DETERIORATION [None]
  - FATIGUE [None]
  - NEOPLASM MALIGNANT [None]
